FAERS Safety Report 24672942 (Version 1)
Quarter: 2024Q4

REPORT INFORMATION
  Report Type: Spontaneous
  Country: US (occurrence: US)
  Receive Date: 20241128
  Receipt Date: 20241128
  Transmission Date: 20250115
  Serious: Yes (Hospitalization)
  Sender: STRIDES
  Company Number: US-STRIDES ARCOLAB LIMITED-2024SP012554

PATIENT
  Sex: Male

DRUGS (12)
  1. LEVETIRACETAM [Suspect]
     Active Substance: LEVETIRACETAM
     Indication: Sleep related hypermotor epilepsy
     Dosage: UNK
     Route: 065
  2. TOPIRAMATE [Suspect]
     Active Substance: TOPIRAMATE
     Indication: Sleep related hypermotor epilepsy
     Dosage: UNK
     Route: 065
  3. GABAPENTIN [Suspect]
     Active Substance: GABAPENTIN
     Indication: Sleep related hypermotor epilepsy
     Dosage: UNK
     Route: 065
  4. GABAPENTIN [Suspect]
     Active Substance: GABAPENTIN
     Indication: Insomnia
     Dosage: UNK
     Route: 065
  5. LAMOTRIGINE [Suspect]
     Active Substance: LAMOTRIGINE
     Indication: Sleep related hypermotor epilepsy
     Dosage: UNK
     Route: 065
  6. CLONAZEPAM [Suspect]
     Active Substance: CLONAZEPAM
     Indication: Sleep related hypermotor epilepsy
     Dosage: UNK
     Route: 065
  7. OXCARBAZEPINE [Suspect]
     Active Substance: OXCARBAZEPINE
     Indication: Sleep related hypermotor epilepsy
     Dosage: UNK
     Route: 065
  8. CLOBAZAM [Suspect]
     Active Substance: CLOBAZAM
     Indication: Sleep related hypermotor epilepsy
     Dosage: UNK
     Route: 065
  9. PROPRANOLOL [Concomitant]
     Active Substance: PROPRANOLOL HYDROCHLORIDE
     Indication: Anxiety
     Dosage: UNK
     Route: 065
  10. CENOBAMATE [Concomitant]
     Active Substance: CENOBAMATE
     Indication: Sleep related hypermotor epilepsy
     Dosage: UNK
     Route: 065
  11. NICOTINE [Concomitant]
     Active Substance: NICOTINE
     Indication: Sleep related hypermotor epilepsy
     Dosage: 7 MILLIGRAM, QD, PATCH
     Route: 062
  12. NICOTINE [Concomitant]
     Active Substance: NICOTINE
     Dosage: 7 MILLIGRAM, QD, PATCH
     Route: 062

REACTIONS (2)
  - Therapy non-responder [Unknown]
  - Off label use [Unknown]
